FAERS Safety Report 8333182-X (Version None)
Quarter: 2012Q2

REPORT INFORMATION
  Report Type: 
  Country: None (occurrence: None)
  Receive Date: 20120503
  Receipt Date: 20120426
  Transmission Date: 20120825
  Serious: Yes (Hospitalization)
  Sender: FDA-Public Use
  Company Number: US-ABBOTT-12P-163-0918167-00

PATIENT
  Sex: Male
  Weight: 70.37 kg

DRUGS (19)
  1. ENTOCORT EC [Concomitant]
     Indication: CROHN'S DISEASE
     Dates: end: 20120318
  2. DILAUDID [Concomitant]
     Indication: ARTHRALGIA
  3. HYTRIN [Concomitant]
     Indication: PRODUCT USED FOR UNKNOWN INDICATION
  4. XANAX [Concomitant]
     Indication: PSYCHOTIC DISORDER
  5. SEROQUEL [Concomitant]
     Indication: SLEEP DISORDER
  6. SYNTHROID [Concomitant]
     Indication: HYPOTHYROIDISM
  7. PREDNISONE [Suspect]
     Indication: CROHN'S DISEASE
  8. HYDROXYZINE PAMOATE [Concomitant]
     Indication: SLEEP DISORDER
  9. REMERON [Concomitant]
     Indication: SLEEP DISORDER
  10. CARTIA XT [Concomitant]
     Indication: HYPERTENSION
     Dosage: 120 MG DAILY
     Dates: end: 20120301
  11. MORPHINE [Concomitant]
     Indication: ARTHRALGIA
  12. XANAX [Concomitant]
     Indication: ANXIETY
  13. CARTIA XT [Concomitant]
     Dosage: 180 MG DAILY
     Dates: start: 20120301
  14. ENTOCORT EC [Concomitant]
     Dates: start: 20120319
  15. PRISTIQ [Concomitant]
     Indication: DEPRESSION
  16. CELEBREX [Concomitant]
     Indication: ARTHRALGIA
  17. HUMIRA [Suspect]
     Indication: CROHN'S DISEASE
     Dosage: 160 MG LOADING DOSE
     Dates: start: 20120312, end: 20120312
  18. PRILOSEC [Concomitant]
     Indication: GASTROOESOPHAGEAL REFLUX DISEASE
  19. MECLIZINE [Concomitant]
     Indication: VERTIGO

REACTIONS (8)
  - SMALL INTESTINE ULCER [None]
  - HAEMOGLOBIN DECREASED [None]
  - DIZZINESS [None]
  - GASTROINTESTINAL HAEMORRHAGE [None]
  - CROHN'S DISEASE [None]
  - HYPERTENSION [None]
  - DYSSTASIA [None]
  - TREMOR [None]
